FAERS Safety Report 12600547 (Version 1)
Quarter: 2016Q3

REPORT INFORMATION
  Report Type: Spontaneous
  Country: JP (occurrence: JP)
  Receive Date: 20160727
  Receipt Date: 20160727
  Transmission Date: 20161109
  Serious: Yes (Other)
  Sender: FDA-Public Use
  Company Number: JP-ALLERGAN-1663978US

PATIENT
  Age: 46 Year
  Sex: Female

DRUGS (3)
  1. BOTOX [Suspect]
     Active Substance: ONABOTULINUMTOXINA
     Indication: BLEPHAROSPASM
     Dosage: 50 IU, UNK
     Route: 030
     Dates: start: 20160716, end: 20160716
  2. SINPITOU [Concomitant]
     Indication: NASOPHARYNGITIS
     Route: 048
  3. ASTOMIN [Concomitant]
     Active Substance: DIMEMORFAN
     Indication: NASOPHARYNGITIS
     Route: 048

REACTIONS (5)
  - Haemorrhage subcutaneous [Unknown]
  - Injection site bruising [Unknown]
  - Injection site haematoma [Unknown]
  - Eyelid oedema [Unknown]
  - Product contamination [Unknown]

NARRATIVE: CASE EVENT DATE: 20160716
